FAERS Safety Report 17090497 (Version 3)
Quarter: 2022Q1

REPORT INFORMATION
  Report Type: Spontaneous
  Country: US (occurrence: US)
  Receive Date: 20191129
  Receipt Date: 20220222
  Transmission Date: 20220423
  Serious: No
  Sender: FDA-Public Use
  Company Number: US-UCBSA-2018020818

PATIENT
  Age: 31 Year
  Sex: Male

DRUGS (5)
  1. KEPPRA [Suspect]
     Active Substance: LEVETIRACETAM
     Indication: Myoclonus
     Dosage: UNKNOWN DOSE
  2. KLONOPIN [Suspect]
     Active Substance: CLONAZEPAM
     Indication: Myoclonus
     Dosage: HIGHER DOSES AT UNKNOWN DOSE
  3. DEPAKOTE [Suspect]
     Active Substance: DIVALPROEX SODIUM
     Indication: Myoclonus
     Dosage: UNKNOWN DOSE
  4. ZONISAMIDE [Suspect]
     Active Substance: ZONISAMIDE
     Indication: Myoclonus
     Dosage: UNKNOWN DOSE
  5. TRYPTOPHAN [Concomitant]
     Active Substance: TRYPTOPHAN
     Indication: Myoclonus
     Dosage: UNKNOWN DOSE

REACTIONS (1)
  - Multiple-drug resistance [Unknown]
